FAERS Safety Report 8530459-X (Version None)
Quarter: 2012Q3

REPORT INFORMATION
  Report Type: 
  Country: None (occurrence: None)
  Receive Date: 20120723
  Receipt Date: 20120718
  Transmission Date: 20120928
  Serious: No
  Sender: FDA-Public Use
  Company Number: US-TEVA-349424USA

PATIENT
  Sex: Female
  Weight: 54.48 kg

DRUGS (2)
  1. YAZ [Concomitant]
     Indication: MENSTRUATION IRREGULAR
     Route: 048
     Dates: start: 20120301
  2. PLAN B ONE-STEP [Suspect]
     Indication: POST COITAL CONTRACEPTION
     Dosage: 1.5 MILLIGRAM;
     Route: 048
     Dates: start: 20120703, end: 20120703

REACTIONS (3)
  - HEADACHE [None]
  - ANXIETY [None]
  - NAUSEA [None]
